FAERS Safety Report 21616227 (Version 3)
Quarter: 2023Q2

REPORT INFORMATION
  Report Type: Spontaneous
  Country: CA (occurrence: CA)
  Receive Date: 20221118
  Receipt Date: 20230406
  Transmission Date: 20230722
  Serious: Yes (Hospitalization)
  Sender: FDA-Public Use
  Company Number: CA-PFIZER INC-202201299860

PATIENT
  Age: 17 Year
  Sex: Male

DRUGS (2)
  1. ABRILADA [Suspect]
     Active Substance: ADALIMUMAB-AFZB
     Indication: Crohn^s disease
     Dosage: 80 MG ONCE , FORMAT UNKNOWN
     Route: 058
     Dates: start: 20220809, end: 20220809
  2. ABRILADA [Suspect]
     Active Substance: ADALIMUMAB-AFZB
     Dosage: 40 MG,EVERY 2 WEEKS
     Route: 058
     Dates: start: 202208

REACTIONS (6)
  - Hand fracture [Not Recovered/Not Resolved]
  - Abdominal pain [Unknown]
  - Fatigue [Unknown]
  - Vomiting [Unknown]
  - Discomfort [Unknown]
  - Neoplasm prostate [Not Recovered/Not Resolved]

NARRATIVE: CASE EVENT DATE: 20221114
